FAERS Safety Report 12426721 (Version 2)
Quarter: 2018Q1

REPORT INFORMATION
  Report Type: Report from Study
  Country: IT (occurrence: IT)
  Receive Date: 20160601
  Receipt Date: 20180220
  Transmission Date: 20180508
  Serious: Yes (Death, Hospitalization)
  Sender: FDA-Public Use
  Company Number: IT-CELGENEUS-ITA-2016054644

PATIENT
  Age: 76 Year
  Sex: Female

DRUGS (1)
  1. ABRAXANE [Suspect]
     Active Substance: PACLITAXEL
     Indication: BREAST CANCER
     Route: 065

REACTIONS (3)
  - Neutropenia [Fatal]
  - Diarrhoea [Fatal]
  - Anaemia [Fatal]

NARRATIVE: CASE EVENT DATE: 20150717
